FAERS Safety Report 9840691 (Version 1)
Quarter: 2014Q1

REPORT INFORMATION
  Report Type: Spontaneous
  Country: GB (occurrence: GB)
  Receive Date: 20140124
  Receipt Date: 20140124
  Transmission Date: 20141002
  Serious: Yes (Other)
  Sender: FDA-Public Use
  Company Number: GB-MYLANLABS-2014S1000800

PATIENT
  Age: 8 Year
  Sex: Male

DRUGS (1)
  1. PREDNISOLONE [Suspect]
     Indication: IMMUNOSUPPRESSANT DRUG THERAPY
     Dosage: 1 MG/KG
     Route: 065

REACTIONS (1)
  - Mental disorder [Unknown]
